FAERS Safety Report 8096520-1 (Version None)
Quarter: 2012Q1

REPORT INFORMATION
  Report Type: 
  Country: None (occurrence: None)
  Receive Date: 20120129
  Receipt Date: 20111205
  Transmission Date: 20120608
  Serious: No
  Sender: FDA-Public Use
  Company Number: US-ABBOTT-11P-163-0880920-00

PATIENT
  Sex: Female
  Weight: 61.29 kg

DRUGS (1)
  1. HUMIRA [Suspect]
     Indication: RHEUMATOID ARTHRITIS
     Dates: start: 20080101

REACTIONS (5)
  - RESPIRATORY TRACT INFECTION [None]
  - DYSPHONIA [None]
  - RESPIRATORY TRACT CONGESTION [None]
  - ILL-DEFINED DISORDER [None]
  - FATIGUE [None]
